FAERS Safety Report 13453616 (Version 1)
Quarter: 2017Q2

REPORT INFORMATION
  Report Type: Spontaneous
  Country: US (occurrence: US)
  Receive Date: 20170418
  Receipt Date: 20170418
  Transmission Date: 20170830
  Serious: No
  Sender: FDA-Public Use
  Company Number: US-ALLERGAN-1661218US

PATIENT
  Age: 35 Year
  Sex: Female
  Weight: 58.96 kg

DRUGS (2)
  1. LATISSE [Suspect]
     Active Substance: BIMATOPROST
     Indication: GROWTH OF EYELASHES
     Dosage: 4 GTT, QPM
     Route: 061
     Dates: start: 20160425
  2. LATISSE [Suspect]
     Active Substance: BIMATOPROST
     Dosage: 4 GTT, QPM
     Route: 061
     Dates: start: 201511

REACTIONS (4)
  - Intentional product misuse [Recovered/Resolved]
  - Ocular discomfort [Recovered/Resolved]
  - Madarosis [Not Recovered/Not Resolved]
  - Ocular hyperaemia [Recovered/Resolved]

NARRATIVE: CASE EVENT DATE: 201511
